FAERS Safety Report 9669972 (Version 1)
Quarter: 2013Q4

REPORT INFORMATION
  Report Type: Spontaneous
  Country: IT (occurrence: IT)
  Receive Date: 20131105
  Receipt Date: 20131105
  Transmission Date: 20140711
  Serious: Yes (Hospitalization)
  Sender: FDA-Public Use
  Company Number: IT-GLAXOSMITHKLINE-B0933279A

PATIENT
  Age: 6 Year
  Sex: Male

DRUGS (2)
  1. BOOSTRIX [Suspect]
     Indication: PROPHYLAXIS
     Route: 065
  2. SALBUTAMOL [Suspect]
     Indication: PROPHYLAXIS

REACTIONS (3)
  - Stevens-Johnson syndrome [Unknown]
  - Dyspnoea [Unknown]
  - Cough [Unknown]
